FAERS Safety Report 8801959 (Version 1)
Quarter: 2012Q4

REPORT INFORMATION
  Report Type: 
  Country: US (occurrence: US)
  Receive Date: 20120921
  Receipt Date: 20120921
  Transmission Date: 20130627
  Serious: Yes (Other)
  Sender: FDA-Public Use
  Company Number: US-PFIZER INC-2012232133

PATIENT
  Age: 72 Year
  Sex: Female
  Weight: 71.7 kg

DRUGS (1)
  1. NEURONTIN [Suspect]
     Indication: NEUROPATHY PERIPHERAL
     Dosage: 300 mg, 1x/day
     Route: 048
     Dates: start: 201204, end: 201204

REACTIONS (6)
  - Retinal detachment [Unknown]
  - Impaired driving ability [Unknown]
  - Visual acuity reduced [Unknown]
  - Drug ineffective [Unknown]
  - Insomnia [Unknown]
  - Pain in extremity [Unknown]
